FAERS Safety Report 16754471 (Version 1)
Quarter: 2019Q4

REPORT INFORMATION
  Report Type: Spontaneous
  Country: US (occurrence: US)
  Receive Date: 20190828
  Receipt Date: 20190828
  Transmission Date: 20200122
  Serious: Yes (Death)
  Sender: FDA-Public Use
  Company Number: None

PATIENT
  Age: 59 Year
  Sex: Female

DRUGS (4)
  1. CYCLOSPORINE. [Concomitant]
     Active Substance: CYCLOSPORINE
  2. ACYCLOVIR. [Concomitant]
     Active Substance: ACYCLOVIR
  3. LISINOPRIL. [Concomitant]
     Active Substance: LISINOPRIL
  4. PROMACTA [Suspect]
     Active Substance: ELTROMBOPAG OLAMINE
     Indication: APLASTIC ANAEMIA
     Route: 048
     Dates: start: 20180827, end: 20190812

REACTIONS (1)
  - Death [None]

NARRATIVE: CASE EVENT DATE: 20190812
